FAERS Safety Report 8766496 (Version 3)
Quarter: 2012Q4

REPORT INFORMATION
  Report Type: 
  Country: SE (occurrence: SE)
  Receive Date: 20120904
  Receipt Date: 20121004
  Transmission Date: 20130627
  Serious: Yes (Death, Hospitalization, Other)
  Sender: FDA-Public Use
  Company Number: SE-AMGEN-SWESP2012055217

PATIENT
  Age: 79 Year
  Sex: Female

DRUGS (27)
  1. NEULASTA [Suspect]
     Indication: CHEMOTHERAPY
     Dosage: 6 mg, one time dose
     Dates: start: 20120712, end: 20120712
  2. NEULASTA [Suspect]
     Indication: NEUTROPENIA
  3. CARBOPLATIN [Suspect]
     Dosage: 300 mg, UNK
     Dates: start: 20120711, end: 20120711
  4. VEPESID [Suspect]
     Dosage: 200 mg, UNK
     Route: 048
     Dates: start: 20120711, end: 20120715
  5. VEPESID [Suspect]
     Dosage: 150 mg, UNK
     Dates: start: 20120713, end: 20120715
  6. CALCICHEW-D3 SPEARMINT [Concomitant]
  7. SYMBICORT FORTE [Concomitant]
  8. CITALOPRAM ACTAVIS                 /00582602/ [Concomitant]
  9. FLUCONAZOLE HEXAL [Concomitant]
  10. RINGER ACETATE [Concomitant]
  11. XALATAN [Concomitant]
  12. ALENDRONATE MYLAN [Concomitant]
     Dosage: UNK UNK, qwk
  13. PIPERACILLIN/TAZOBACTAM STRAGEN [Concomitant]
  14. OVESTERIN [Concomitant]
  15. POSTAFEN                           /00060202/ [Concomitant]
  16. ATARAX                             /00058401/ [Concomitant]
  17. SOLU-CORTEF [Concomitant]
  18. PANODIL [Concomitant]
  19. MORFIN                             /00036303/ [Concomitant]
  20. SPARKAL [Concomitant]
  21. TAMOXIFEN MYLAN [Concomitant]
  22. DOLCONTIN                          /00036302/ [Concomitant]
  23. GLUKOS BRAUN [Concomitant]
     Dosage: 50 mg/ml, UNK
  24. IMOVANE [Concomitant]
  25. ACETYLCYSTEIN [Concomitant]
  26. VISCOTEARS [Concomitant]
  27. HALDOL                             /00027401/ [Concomitant]

REACTIONS (3)
  - Neutropenia [Fatal]
  - Sepsis [Fatal]
  - Adverse drug reaction [Fatal]
